FAERS Safety Report 9341622 (Version 4)
Quarter: 2014Q1

REPORT INFORMATION
  Report Type: Spontaneous
  Country: US (occurrence: US)
  Receive Date: 20130611
  Receipt Date: 20140321
  Transmission Date: 20141002
  Serious: No
  Sender: FDA-Public Use
  Company Number: US-PFIZER INC-2013174052

PATIENT
  Age: 65 Year
  Sex: Male
  Weight: 111.1 kg

DRUGS (25)
  1. INLYTA [Suspect]
     Indication: RENAL CANCER METASTATIC
     Dosage: 5 MG, 2X/DAY
     Route: 048
     Dates: start: 20130513, end: 20130531
  2. INLYTA [Suspect]
     Dosage: 5 MG, ALTERNATE DAY (EVERY OTHER DAY)
     Route: 048
     Dates: start: 20130618, end: 20130828
  3. DUONEB [Concomitant]
     Dosage: 0.5-2.5 MG/3 ML (TAKE 3 MLS BY NEBULISATION)
  4. NORVASC [Concomitant]
     Dosage: 10 MG, 1X/DAY
     Route: 048
  5. WELLBUTRIN [Concomitant]
     Dosage: 75 MG, 2X/DAY
     Route: 048
  6. OSCAL [Concomitant]
     Dosage: 1250 MG, 1X/DAY (TAKE 1 TABLET)
     Route: 048
  7. BENADRYL [Concomitant]
     Dosage: 25 MG, (1 CAPSULE EVERY 12 HOURS)
  8. GEORGES [Concomitant]
     Dosage: 10 ML, (SWALLOW EVERY 6 HOURS)
  9. CARDURA [Concomitant]
     Dosage: 4 MG, 1X/DAY
     Route: 048
  10. DURAGESIC [Concomitant]
     Dosage: 25 UG, (PER HR, PLACE 1 PATCH ONTO THE SKIN EVERY THIRD DAY)
     Route: 062
  11. GLUCOTROL [Concomitant]
     Dosage: 5 MG, 4X/DAY (BEFORE MEALS AND NIGHTLY)
     Route: 048
  12. NOVOLOG [Concomitant]
     Dosage: 100 UNIT/ML, INJECT 1 UNITS INTO THE SKIN AS NEEDED
  13. LANTUS [Concomitant]
     Dosage: 100 UNIT/ML, INJECT 40 UNITS INTO THE SKIN BEFORE BREAKFAST
  14. LANTUS [Concomitant]
     Dosage: 100 UNIT/ML, INJECT 15 UNITS INTO THE SKIN NIGHTLY
  15. SYNTHROID [Concomitant]
     Dosage: 150 UG, 1X/DAY
     Route: 048
  16. LEVOTHROID [Concomitant]
     Dosage: 150 UG, 1X/DAY
     Route: 048
  17. THERAGRAN [Concomitant]
     Dosage: 1 DF, 1X/DAY (1 TABLET)
     Route: 048
  18. MYCOSTATIN [Concomitant]
     Dosage: 5 ML, 4X/DAY (100000 UNIT/ML, TAKE 5 MLS)
     Route: 048
  19. PRILOSEC [Concomitant]
     Dosage: 20 MG, 2X/DAY
     Route: 048
  20. ZOFRAN [Concomitant]
     Indication: NAUSEA
     Dosage: 8 MG, AS NEEDED (TAKE 1 TABLET EVERY 8 HOURS)
     Route: 048
  21. DELTASONE [Concomitant]
     Dosage: 10 MG, (3 TABLETS EVERY 8 HOURS)
  22. CRESTOR [Concomitant]
     Dosage: 40 MG, 2X/DAY
     Route: 048
  23. SENNA [Concomitant]
     Dosage: (3 TABLETS IN AM, 3 TABLETS IN PM)
     Route: 048
  24. FLOMAX [Concomitant]
     Dosage: 0.4 MG, 1X/DAY
     Route: 048
  25. COUMADIN [Concomitant]
     Dosage: 2.5 MG, (5 MG EVERY TUESDAY AND THURSDAY, 2.5 MG EVERY OTHER DAY)

REACTIONS (4)
  - Disease progression [Unknown]
  - Renal cancer [Unknown]
  - Malaise [Unknown]
  - Performance status decreased [Recovered/Resolved]
